FAERS Safety Report 13062361 (Version 2)
Quarter: 2017Q1

REPORT INFORMATION
  Report Type: Spontaneous
  Country: JP (occurrence: JP)
  Receive Date: 20161226
  Receipt Date: 20170119
  Transmission Date: 20170428
  Serious: Yes (Other)
  Sender: FDA-Public Use
  Company Number: JP-GILEAD-2016-0249462AA

PATIENT
  Age: 48 Year
  Sex: Male

DRUGS (2)
  1. SOVALDI [Suspect]
     Active Substance: SOFOSBUVIR
     Indication: CHRONIC HEPATITIS C
     Dosage: 400 MG, UNK
     Route: 048
     Dates: start: 20161202
  2. REBETOL [Concomitant]
     Active Substance: RIBAVIRIN
     Indication: CHRONIC HEPATITIS C
     Dosage: UNK
     Route: 048
     Dates: start: 20161202

REACTIONS (1)
  - Hepatitis B [Recovering/Resolving]

NARRATIVE: CASE EVENT DATE: 20161216
